FAERS Safety Report 5852307-9 (Version None)
Quarter: 2008Q3

REPORT INFORMATION
  Report Type: 
  Country: None (occurrence: None)
  Receive Date: 20080821
  Receipt Date: 20080811
  Transmission Date: 20090109
  Serious: No
  Sender: FDA-Public Use
  Company Number: CH-ELI_LILLY_AND_COMPANY-CH200808002044

PATIENT
  Age: 62 Year
  Sex: Male
  Weight: 62.5 kg

DRUGS (1)
  1. ZYPREXA [Suspect]
     Indication: SCHIZOPHRENIA, PARANOID TYPE
     Dosage: 15 MG, DAILY (1/D)
     Route: 048
     Dates: start: 20070101

REACTIONS (2)
  - MOUTH HAEMORRHAGE [None]
  - URINARY INCONTINENCE [None]
